FAERS Safety Report 9981863 (Version 1)
Quarter: 2014Q1

REPORT INFORMATION
  Report Type: Spontaneous
  Country: US (occurrence: None)
  Receive Date: 20140306
  Receipt Date: 20140306
  Transmission Date: 20141002
  Serious: Yes (Hospitalization)
  Sender: FDA-Public Use
  Company Number: None

PATIENT
  Age: 73 Year
  Sex: Male
  Weight: 70.8 kg

DRUGS (2)
  1. METHOXYAMINE [Suspect]
     Indication: COLON CANCER
     Route: 042
     Dates: start: 20140129
  2. TEMODAR [Suspect]
     Route: 048
     Dates: start: 20140129, end: 20140202

REACTIONS (4)
  - Amnesia [None]
  - Mental status changes [None]
  - Confusional state [None]
  - Cerebrovascular accident [None]
